FAERS Safety Report 5755002-X (Version None)
Quarter: 2008Q2

REPORT INFORMATION
  Report Type: 
  Country: None (occurrence: None)
  Receive Date: 20080530
  Receipt Date: 20080530
  Transmission Date: 20081010
  Serious: Yes (Death)
  Sender: FDA-Public Use
  Company Number: None

PATIENT
  Sex: Male
  Weight: 73.7 kg

DRUGS (1)
  1. THYMOGLOBULIN [Suspect]
     Indication: MULTIPLE MYELOMA
     Dosage: 2MG/KG, QD, IV
     Route: 042
     Dates: start: 20061214, end: 20061217

REACTIONS (1)
  - NO THERAPEUTIC RESPONSE [None]
